FAERS Safety Report 6190485-5 (Version None)
Quarter: 2009Q2

REPORT INFORMATION
  Report Type: 
  Country: None (occurrence: None)
  Receive Date: 20090514
  Receipt Date: 20090508
  Transmission Date: 20091009
  Serious: Yes (Other)
  Sender: FDA-Public Use
  Company Number: MW-GILEAD-2009-0021861

PATIENT
  Age: 30 Year
  Sex: Female
  Weight: 56.3 kg

DRUGS (2)
  1. TRUVADA [Suspect]
     Indication: HIV INFECTION
     Route: 048
     Dates: start: 20060112
  2. LOPINAVIR [Suspect]
     Indication: HIV INFECTION
     Route: 048
     Dates: start: 20060112

REACTIONS (1)
  - ABORTION COMPLETE [None]
